FAERS Safety Report 4779844-2 (Version None)
Quarter: 2005Q3

REPORT INFORMATION
  Report Type: 
  Country: None (occurrence: None)
  Receive Date: 20050927
  Receipt Date: 20050811
  Transmission Date: 20060218
  Serious: Yes (Hospitalization, Other)
  Sender: FDA-Public Use
  Company Number: US-ABBOTT-05P-163-0308120-00

PATIENT
  Sex: Male
  Weight: 77.18 kg

DRUGS (9)
  1. HUMIRA [Suspect]
     Indication: RHEUMATOID ARTHRITIS
     Route: 058
     Dates: start: 20040101, end: 20050609
  2. HUMIRA [Suspect]
     Route: 058
     Dates: start: 20050714
  3. SULFASALAZINE [Concomitant]
     Indication: RHEUMATOID ARTHRITIS
     Route: 048
  4. PREDNISONE [Concomitant]
     Indication: RHEUMATOID ARTHRITIS
     Route: 048
  5. CALCIUM GLUCONATE [Concomitant]
     Indication: RHEUMATOID ARTHRITIS
     Route: 048
  6. FISH OIL [Concomitant]
     Indication: BLOOD TRIGLYCERIDES INCREASED
     Route: 048
     Dates: start: 20050601
  7. METOPROLOL [Concomitant]
     Indication: CARDIAC DISORDER
     Route: 048
     Dates: start: 20050601
  8. CLOPIDOGREL BISULFATE [Concomitant]
     Indication: CARDIAC DISORDER
     Route: 048
     Dates: start: 20050601
  9. PRAVASTATIN SODIUM [Concomitant]
     Indication: CARDIAC DISORDER
     Route: 048
     Dates: start: 20050601

REACTIONS (5)
  - CHEST PAIN [None]
  - CORONARY ARTERY OCCLUSION [None]
  - DIZZINESS [None]
  - DYSPNOEA [None]
  - NAUSEA [None]
